FAERS Safety Report 13894130 (Version 1)
Quarter: 2017Q3

REPORT INFORMATION
  Report Type: Spontaneous
  Country: US (occurrence: US)
  Receive Date: 20170816
  Receipt Date: 20170816
  Transmission Date: 20171127
  Serious: Yes (Other)
  Sender: FDA-Public Use
  Company Number: None

PATIENT
  Age: 39 Year
  Sex: Female
  Weight: 104.2 kg

DRUGS (3)
  1. DILAUDID [Suspect]
     Active Substance: HYDROMORPHONE HYDROCHLORIDE
     Indication: CYSTITIS
     Dosage: ?          OTHER FREQUENCY:ONCE; INTRAVENOUS (NOT OTHERWISE SPECIFIED) ?
     Route: 042
     Dates: start: 20170815, end: 20170815
  2. DILAUDID [Suspect]
     Active Substance: HYDROMORPHONE HYDROCHLORIDE
     Indication: HAEMATURIA
     Dosage: ?          OTHER FREQUENCY:ONCE; INTRAVENOUS (NOT OTHERWISE SPECIFIED) ?
     Route: 042
     Dates: start: 20170815, end: 20170815
  3. DILAUDID [Suspect]
     Active Substance: HYDROMORPHONE HYDROCHLORIDE
     Indication: URINARY TRACT INFECTION
     Dosage: ?          OTHER FREQUENCY:ONCE; INTRAVENOUS (NOT OTHERWISE SPECIFIED) ?
     Route: 042
     Dates: start: 20170815, end: 20170815

REACTIONS (3)
  - Urticaria [None]
  - Injection site pruritus [None]
  - Injection site erythema [None]

NARRATIVE: CASE EVENT DATE: 20170815
